FAERS Safety Report 9231674 (Version 1)
Quarter: 2013Q2

REPORT INFORMATION
  Report Type: Spontaneous
  Country: US (occurrence: US)
  Receive Date: 20130415
  Receipt Date: 20130415
  Transmission Date: 20140414
  Serious: Yes (Death)
  Sender: FDA-Public Use
  Company Number: US-ALLERGAN-1305353US

PATIENT
  Sex: Male

DRUGS (5)
  1. BOTOX? [Suspect]
     Indication: PROCTALGIA
     Dosage: UNK UNK, SINGLE
     Dates: start: 20130410, end: 20130410
  2. NEURONTIN [Concomitant]
     Indication: NEUROPATHY PERIPHERAL
     Dosage: UNK
     Dates: end: 20130411
  3. HYPERTENSION MEDICATIONS NOS [Concomitant]
     Indication: HYPERTENSION
     Dosage: UNK
     Dates: end: 20130411
  4. MEDICATIONS NOS [Concomitant]
     Indication: PRODUCT USED FOR UNKNOWN INDICATION
  5. VERSED [Concomitant]
     Indication: SEDATIVE THERAPY
     Dosage: 10 MG, SINGLE
     Dates: start: 20130410, end: 20130410

REACTIONS (2)
  - Death [Fatal]
  - Off label use [Unknown]
